FAERS Safety Report 9642794 (Version 1)
Quarter: 2013Q4

REPORT INFORMATION
  Report Type: Spontaneous
  Country: ME (occurrence: ME)
  Receive Date: 20131024
  Receipt Date: 20131024
  Transmission Date: 20140711
  Serious: Yes (Hospitalization)
  Sender: FDA-Public Use
  Company Number: ME-JNJFOC-20131010229

PATIENT
  Age: 64 Year
  Sex: Female
  Weight: 85 kg

DRUGS (7)
  1. REMICADE [Suspect]
     Indication: RHEUMATOID ARTHRITIS
     Route: 042
     Dates: start: 20130719
  2. REMICADE [Suspect]
     Indication: RHEUMATOID ARTHRITIS
     Route: 042
     Dates: start: 20130606
  3. REMICADE [Suspect]
     Indication: RHEUMATOID ARTHRITIS
     Route: 042
     Dates: start: 20130620
  4. METHOTREXATE [Interacting]
     Indication: RHEUMATOID ARTHRITIS
     Route: 030
     Dates: start: 201203, end: 201307
  5. NAPROXEN [Concomitant]
     Route: 048
     Dates: start: 201203
  6. CONTROLOC [Concomitant]
     Route: 048
     Dates: start: 201203
  7. ALPHA D3 [Concomitant]
     Route: 048
     Dates: start: 201203

REACTIONS (2)
  - Pulmonary tuberculosis [Recovering/Resolving]
  - Drug interaction [Unknown]
